FAERS Safety Report 5604131-X (Version None)
Quarter: 2008Q1

REPORT INFORMATION
  Report Type: 
  Country: None (occurrence: None)
  Receive Date: 20080123
  Receipt Date: 20080109
  Transmission Date: 20080703
  Serious: Yes (Life-Threatening, Hospitalization)
  Sender: FDA-Public Use
  Company Number: CVD20080001

PATIENT
  Age: 63 Year
  Sex: Male

DRUGS (9)
  1. CARVEDILOL [Suspect]
     Indication: CARDIAC FAILURE CONGESTIVE
     Dosage: 37.5MG BID PO
     Route: 048
     Dates: start: 20071101, end: 20071201
  2. ENALAPRIL MALEATE [Concomitant]
  3. ISOSORBIDE DINITRATE [Concomitant]
  4. FUROSEMIDE [Concomitant]
  5. ALLOPURINOL [Concomitant]
  6. ASPIRIN [Concomitant]
  7. FOLIC ACID [Concomitant]
  8. FISH OIL [Concomitant]
  9. MULTI-VITAMIN [Concomitant]

REACTIONS (4)
  - ARRHYTHMIA [None]
  - DIZZINESS [None]
  - PHARMACEUTICAL PRODUCT COMPLAINT [None]
  - REFUSAL OF TREATMENT BY PATIENT [None]
